FAERS Safety Report 12268452 (Version 4)
Quarter: 2016Q3

REPORT INFORMATION
  Report Type: Spontaneous
  Country: GB (occurrence: GB)
  Receive Date: 20160414
  Receipt Date: 20160729
  Transmission Date: 20161109
  Serious: Yes (Hospitalization, Other)
  Sender: FDA-Public Use
  Company Number: GB-MYLANLABS-2016M1014514

PATIENT

DRUGS (10)
  1. CISPLATIN. [Suspect]
     Active Substance: CISPLATIN
     Indication: PRODUCT USED FOR UNKNOWN INDICATION
     Dosage: 156 MG, UNK
     Route: 042
  2. AVASTIN [Suspect]
     Active Substance: BEVACIZUMAB
     Indication: PRODUCT USED FOR UNKNOWN INDICATION
     Dosage: 675 MG, UNK
     Route: 042
     Dates: start: 20160321
  3. AVASTIN [Suspect]
     Active Substance: BEVACIZUMAB
     Dosage: 675 MG, UNK
     Route: 042
  4. DENOSUMAB [Suspect]
     Active Substance: DENOSUMAB
     Indication: PRODUCT USED FOR UNKNOWN INDICATION
     Dosage: 120 MG, UNK
     Route: 065
  5. NEULASTA [Suspect]
     Active Substance: PEGFILGRASTIM
     Indication: PRODUCT USED FOR UNKNOWN INDICATION
     Dosage: 6 MG, UNK
     Route: 058
     Dates: start: 20160322
  6. PEMETREXED [Suspect]
     Active Substance: PEMETREXED
     Dosage: 1050 MG, UNK
     Dates: start: 20160321
  7. CISPLATIN. [Suspect]
     Active Substance: CISPLATIN
     Dosage: 156 UNK, UNK
     Dates: start: 20160321
  8. APREPITANT. [Suspect]
     Active Substance: APREPITANT
     Indication: PRODUCT USED FOR UNKNOWN INDICATION
     Dosage: UNK
  9. NEULASTA [Suspect]
     Active Substance: PEGFILGRASTIM
     Dosage: 6 MG, UNK
     Route: 058
     Dates: start: 20160322
  10. PEMETREXED [Suspect]
     Active Substance: PEMETREXED
     Indication: PRODUCT USED FOR UNKNOWN INDICATION
     Dosage: 1050 MG, UNK
     Route: 065
     Dates: start: 20160321

REACTIONS (22)
  - Fatigue [Unknown]
  - Dehydration [Unknown]
  - Dysgeusia [Unknown]
  - Cough [Unknown]
  - Paraesthesia [Unknown]
  - Contusion [Unknown]
  - Ocular hyperaemia [Unknown]
  - Decreased appetite [Unknown]
  - Malaise [Unknown]
  - Somnolence [Unknown]
  - Flushing [Unknown]
  - Headache [Unknown]
  - Neuropathy peripheral [Unknown]
  - Melaena [Unknown]
  - Dyspnoea [Unknown]
  - Joint swelling [Unknown]
  - Alopecia [Unknown]
  - Syncope [Unknown]
  - Dizziness [Unknown]
  - Fall [Unknown]
  - Rhinorrhoea [Unknown]
  - Epistaxis [Unknown]

NARRATIVE: CASE EVENT DATE: 20160321
